FAERS Safety Report 9398737 (Version 1)
Quarter: 2013Q3

REPORT INFORMATION
  Report Type: Spontaneous
  Country: US (occurrence: US)
  Receive Date: 20130712
  Receipt Date: 20130712
  Transmission Date: 20140515
  Serious: Yes (Other)
  Sender: FDA-Public Use
  Company Number: US-US-EMD SERONO, INC.-239031K07USA

PATIENT
  Sex: Female
  Weight: 93 kg

DRUGS (14)
  1. REBIF [Suspect]
     Indication: MULTIPLE SCLEROSIS
     Dates: start: 2006, end: 200703
  2. REBIF [Suspect]
     Route: 058
     Dates: start: 20070919, end: 200804
  3. REBIF [Suspect]
     Route: 058
  4. REBIF [Suspect]
     Route: 058
  5. METFORMIN [Concomitant]
     Indication: DIABETES MELLITUS
     Dates: start: 2007
  6. LOVASTATIN [Concomitant]
     Indication: BLOOD CHOLESTEROL INCREASED
     Dates: start: 2007
  7. LORTAB                             /00607101/ [Concomitant]
     Indication: HEADACHE
     Dates: start: 2006
  8. PREMARIN [Concomitant]
     Indication: HORMONE REPLACEMENT THERAPY
     Dates: start: 2003
  9. HYDROCHLOROTHIAZIDE W/TRIAMTERENE [Concomitant]
     Indication: HYPERTENSION
     Dates: start: 2006
  10. AMLODIPINE [Concomitant]
     Indication: HYPERTENSION
     Dates: start: 2006
  11. KEPPRA [Concomitant]
     Indication: CONVULSION
  12. KEPPRA [Concomitant]
     Dates: start: 200704, end: 200709
  13. KEPPRA [Concomitant]
     Dates: start: 200709, end: 200802
  14. KEPPRA [Concomitant]
     Dates: start: 200802

REACTIONS (1)
  - Convulsion [Not Recovered/Not Resolved]
